FAERS Safety Report 6613507 (Version 2)
Quarter: 2015Q4

REPORT INFORMATION
  Report Type: Spontaneous
  Country: DE (occurrence: DE)
  Receive Date: 20080401
  Receipt Date: 20151229
  Transmission Date: 20160305
  Serious: Yes (Death, Other)
  Sender: FDA-Public Use
  Company Number: GXKR2008DE02847

PATIENT
  Age: 58 Year
  Sex: Male

DRUGS (14)
  1. PREDNISONE. [Suspect]
     Active Substance: PREDNISONE
     Indication: CHRONIC LYMPHOCYTIC LEUKAEMIA
     Dosage: 40 MG/M2, 3 CYCLES IN TOTAL
     Route: 065
     Dates: start: 2003
  2. FLUDARABINE [Suspect]
     Active Substance: FLUDARABINE PHOSPHATE
     Indication: CHRONIC LYMPHOCYTIC LEUKAEMIA
     Dosage: 25 MG/M2, 6 CYCLES
     Route: 065
     Dates: start: 2002
  3. BUSULFAN [Suspect]
     Active Substance: BUSULFAN
     Indication: BONE MARROW CONDITIONING REGIMEN
  4. CICLOSPORIN [Suspect]
     Active Substance: CYCLOSPORINE
     Indication: PROPHYLAXIS AGAINST GRAFT VERSUS HOST DISEASE
     Dosage: 200-400 MG, QD
     Route: 065
     Dates: start: 2004
  5. PREDNISONE. [Suspect]
     Active Substance: PREDNISONE
     Indication: INFLAMMATION
  6. CYCLOPHOSPHAMIDE. [Suspect]
     Active Substance: CYCLOPHOSPHAMIDE
     Indication: CHRONIC LYMPHOCYTIC LEUKAEMIA
     Dosage: 300 MG/M2, 3 CYCLES IN TOTAL
     Route: 065
     Dates: start: 2003
  7. BUSULFAN [Suspect]
     Active Substance: BUSULFAN
     Indication: CHRONIC LYMPHOCYTIC LEUKAEMIA
     Dosage: 1 MG/KG, QID
     Route: 065
     Dates: start: 2004
  8. VINCRISTINE [Suspect]
     Active Substance: VINCRISTINE
     Indication: CHRONIC LYMPHOCYTIC LEUKAEMIA
     Dosage: 1 MG/M2, 3 CYCLES IN TOTAL
     Route: 065
     Dates: start: 2003
  9. PREDNISOLONE. [Suspect]
     Active Substance: PREDNISOLONE
     Indication: GRAFT VERSUS HOST DISEASE IN SKIN
     Dosage: 50-80 MG, QD
     Route: 065
     Dates: start: 2004
  10. ALEMTUZUMAB [Suspect]
     Active Substance: ALEMTUZUMAB
     Dosage: 5, 10 AND 20 MG
     Dates: start: 2004
  11. DOXORUBICIN [Suspect]
     Active Substance: DOXORUBICIN
     Indication: CHRONIC LYMPHOCYTIC LEUKAEMIA
     Dosage: 25 MG/M2, 3 CYCLES IN TOTAL
     Route: 065
     Dates: start: 2003
  12. FLUDARABINE [Suspect]
     Active Substance: FLUDARABINE PHOSPHATE
     Dosage: 30 MG/M2
     Dates: start: 2004
  13. ALEMTUZUMAB [Suspect]
     Active Substance: ALEMTUZUMAB
     Indication: CHRONIC LYMPHOCYTIC LEUKAEMIA
     Dosage: 30 MG, 20 APPLICATIONS IN TOTAL
     Route: 065
     Dates: start: 2004
  14. TACROLIMUS. [Suspect]
     Active Substance: TACROLIMUS
     Indication: PROPHYLAXIS AGAINST GRAFT VERSUS HOST DISEASE
     Dosage: 1 MG, BID
     Route: 065
     Dates: start: 2004

REACTIONS (16)
  - Demyelination [Fatal]
  - Urinary incontinence [Fatal]
  - Cytomegalovirus infection [Recovered/Resolved]
  - Progressive multifocal leukoencephalopathy [Fatal]
  - Hemianopia homonymous [Fatal]
  - Disorientation [Fatal]
  - Faecal incontinence [Fatal]
  - Tremor [Fatal]
  - Deafness [Fatal]
  - Immunosuppression [Unknown]
  - JC virus infection [Fatal]
  - Mood altered [Fatal]
  - Vertigo [Fatal]
  - Pleocytosis [Fatal]
  - Somnolence [Fatal]
  - Blindness [Fatal]
